FAERS Safety Report 9312542 (Version 2)
Quarter: 2013Q3

REPORT INFORMATION
  Report Type: Spontaneous
  Country: JP (occurrence: None)
  Receive Date: 20130520
  Receipt Date: 20130924
  Transmission Date: 20140515
  Serious: Yes (Other)
  Sender: FDA-Public Use
  Company Number: 2013-000509

PATIENT
  Age: 67 Year
  Sex: Female

DRUGS (4)
  1. ACTONEL [Suspect]
     Indication: OSTEOPENIA
     Dosage: 17.5MG ONCE WEEKLY, ORAL
     Route: 048
     Dates: start: 20121116, end: 20130119
  2. MICOMBI COMBINATION [Concomitant]
  3. CRESTOR (ROSUVASTATIN CALCIUM) [Concomitant]
  4. PARIET (RABEPRAZOLE SODIUM) [Concomitant]

REACTIONS (2)
  - Hepatic function abnormal [None]
  - Blood creatine phosphokinase increased [None]
